FAERS Safety Report 5766045-4 (Version None)
Quarter: 2008Q2

REPORT INFORMATION
  Report Type: 
  Country: None (occurrence: None)
  Receive Date: 20080611
  Receipt Date: 20080530
  Transmission Date: 20081010
  Serious: Yes (Other)
  Sender: FDA-Public Use
  Company Number: US-PFIZER INC-2008046723

PATIENT
  Sex: Male

DRUGS (2)
  1. LYRICA [Suspect]
  2. MELOXICAM [Suspect]

REACTIONS (6)
  - CHEST PAIN [None]
  - FAECES DISCOLOURED [None]
  - HEART INJURY [None]
  - LIVER INJURY [None]
  - OESOPHAGEAL INJURY [None]
  - PAIN [None]
